FAERS Safety Report 16405527 (Version 1)
Quarter: 2019Q2

REPORT INFORMATION
  Report Type: Spontaneous
  Country: CH (occurrence: CH)
  Receive Date: 20190607
  Receipt Date: 20190607
  Transmission Date: 20190711
  Serious: Yes (Other)
  Sender: FDA-Public Use
  Company Number: CH-009507513-1906CHE001554

PATIENT
  Age: 53 Year
  Sex: Male

DRUGS (18)
  1. METOPROLOL. [Suspect]
     Active Substance: METOPROLOL
     Dosage: 50 MILLIGRAM
     Dates: start: 20190527
  2. AMLODIPINE [Concomitant]
     Active Substance: AMLODIPINE BESYLATE
     Dosage: UNK
     Dates: start: 20190526
  3. ENALAPRIL [Concomitant]
     Active Substance: ENALAPRIL
     Dosage: UNK
     Dates: start: 20190529
  4. CEFAZOLIN [Concomitant]
     Active Substance: CEFAZOLIN
     Dates: start: 20190523, end: 20190524
  5. NOREPINEPHRINE. [Concomitant]
     Active Substance: NOREPINEPHRINE
     Dates: start: 20190523, end: 20190523
  6. POTASSIUM (UNSPECIFIED) [Concomitant]
     Active Substance: POTASSIUM
     Dates: start: 20190523, end: 20190525
  7. PROPOFOL. [Concomitant]
     Active Substance: PROPOFOL
     Dates: start: 20190523, end: 20190523
  8. FOLIC ACID. [Concomitant]
     Active Substance: FOLIC ACID
  9. METOPROLOL. [Suspect]
     Active Substance: METOPROLOL
     Dosage: 25 MILLIGRAM, QD
     Dates: start: 20190522, end: 20190526
  10. METOPROLOL. [Suspect]
     Active Substance: METOPROLOL
     Dosage: 37.5 MILLIGRAM
     Dates: start: 20190526, end: 20190527
  11. SEVREDOL [Concomitant]
     Active Substance: MORPHINE
     Dosage: UNK
     Dates: start: 20190524
  12. MAGNESIUM (UNSPECIFIED) [Concomitant]
     Active Substance: MAGNESIUM
     Dates: start: 20190525
  13. ACETAMINOPHEN. [Suspect]
     Active Substance: ACETAMINOPHEN
     Dosage: 4 GRAM, QD
     Route: 048
     Dates: start: 20190524, end: 20190528
  14. SODIUM NITROPRUSSIDE. [Concomitant]
     Active Substance: SODIUM NITROPRUSSIDE
     Dosage: UNK
     Dates: start: 20190523
  15. IRON (UNSPECIFIED) [Concomitant]
     Active Substance: IRON
     Dosage: UNK
     Dates: start: 20190525
  16. ASPIRIN CARDIO [Suspect]
     Active Substance: ASPIRIN
     Dosage: 100 MILLIGRAM, QD
     Route: 048
     Dates: start: 20190522
  17. ATOZET [Suspect]
     Active Substance: ATORVASTATIN CALCIUM\EZETIMIBE
     Dosage: 1 DOSAGE FORM, QD
     Route: 048
     Dates: start: 20190522, end: 20190529
  18. HEPARIN [Concomitant]
     Active Substance: HEPARIN SODIUM
     Dates: start: 20190523, end: 20190524

REACTIONS (1)
  - Liver injury [Not Recovered/Not Resolved]

NARRATIVE: CASE EVENT DATE: 20190525
